FAERS Safety Report 21072564 (Version 1)
Quarter: 2022Q3

REPORT INFORMATION
  Report Type: Spontaneous
  Country: US (occurrence: None)
  Receive Date: 20220712
  Receipt Date: 20220712
  Transmission Date: 20221026
  Serious: No
  Sender: FDA-Public Use
  Company Number: None

PATIENT
  Sex: Female

DRUGS (1)
  1. HUMIRA [Suspect]
     Active Substance: ADALIMUMAB
     Indication: Rheumatoid arthritis
     Dosage: OTHER FREQUENCY : 1EVERY14DAYS;?
     Dates: start: 20210923

REACTIONS (4)
  - Arthralgia [None]
  - Joint swelling [None]
  - Insomnia [None]
  - Peripheral swelling [None]
